FAERS Safety Report 5328321-9 (Version None)
Quarter: 2007Q2

REPORT INFORMATION
  Report Type: 
  Country: None (occurrence: None)
  Receive Date: 20070515
  Receipt Date: 20070515
  Transmission Date: 20071010
  Serious: Yes (Death, Hospitalization)
  Sender: FDA-Public Use
  Company Number: None

PATIENT
  Sex: Male

DRUGS (4)
  1. REVLIMID [Suspect]
     Indication: MULTIPLE MYELOMA
     Dosage: 25MG DAILY 21D/28D PO
     Route: 048
     Dates: start: 20070330, end: 20070414
  2. PREDNISONE TAB [Concomitant]
  3. FUROSEMIDE [Concomitant]
  4. K-TAB [Concomitant]

REACTIONS (6)
  - ASTHENIA [None]
  - BODY TEMPERATURE INCREASED [None]
  - DISEASE PROGRESSION [None]
  - HAEMOGLOBIN DECREASED [None]
  - PNEUMONIA [None]
  - PROTEIN TOTAL DECREASED [None]
